FAERS Safety Report 9098615 (Version 2)
Quarter: 2013Q1

REPORT INFORMATION
  Report Type: Spontaneous
  Country: US (occurrence: US)
  Receive Date: 20130213
  Receipt Date: 20130304
  Transmission Date: 20140127
  Serious: No
  Sender: FDA-Public Use
  Company Number: US-PFIZER INC-2013058205

PATIENT
  Age: 52 Year
  Sex: Female
  Weight: 90 kg

DRUGS (6)
  1. CHANTIX [Suspect]
     Indication: SMOKING CESSATION THERAPY
     Dosage: 0.5 MG, 1X/DAY
     Route: 048
     Dates: start: 20130201, end: 201302
  2. CHANTIX [Suspect]
     Dosage: 1 MG, 2X/DAY
     Route: 048
     Dates: start: 201302
  3. METOPROLOL [Concomitant]
     Indication: HYPERTENSION
     Dosage: 100 MG, UNK
  4. CLONIDINE [Concomitant]
     Indication: HYPERTENSION
     Dosage: UNK, 1X/DAY
  5. HYDROCODONE [Concomitant]
     Indication: BACK PAIN
     Dosage: UNK
  6. ALPRAZOLAM [Concomitant]
     Dosage: UNK

REACTIONS (4)
  - Headache [Recovered/Resolved]
  - Nausea [Recovered/Resolved]
  - Decreased appetite [Recovered/Resolved]
  - Malaise [Recovered/Resolved]
